FAERS Safety Report 6339379-2 (Version None)
Quarter: 2009Q3

REPORT INFORMATION
  Report Type: 
  Country: None (occurrence: None)
  Receive Date: 20090828
  Receipt Date: 20080709
  Transmission Date: 20100115
  Serious: Yes (Hospitalization, Other)
  Sender: FDA-Public Use
  Company Number: KADN20080191

PATIENT
  Sex: Female

DRUGS (1)
  1. KADIAN [Suspect]
     Dosage: PER ORAL
     Route: 048
     Dates: end: 20080601

REACTIONS (1)
  - PULMONARY OEDEMA [None]
